FAERS Safety Report 8914119 (Version 1)
Quarter: 2012Q4

REPORT INFORMATION
  Report Type: 
  Country: US (occurrence: US)
  Receive Date: 20121119
  Receipt Date: 20121119
  Transmission Date: 20130627
  Serious: Yes (Hospitalization)
  Sender: FDA-Public Use
  Company Number: US-BAYER-2012-118441

PATIENT
  Age: 27 Year
  Sex: Female
  Weight: 88.44 kg

DRUGS (5)
  1. YAZ [Suspect]
  2. FLEXERIL [Concomitant]
     Dosage: 10 mg,daily HS
     Route: 048
  3. NAPROSYN [Concomitant]
     Dosage: 500 mg, BID
     Route: 048
  4. VITAMINS [Concomitant]
     Dosage: UNK;daily
     Route: 048
  5. HABITROL [Concomitant]
     Dosage: UNK

REACTIONS (1)
  - Deep vein thrombosis [None]
